FAERS Safety Report 4399918-8 (Version None)
Quarter: 2004Q3

REPORT INFORMATION
  Report Type: 
  Country: None (occurrence: None)
  Receive Date: 20040714
  Receipt Date: 20040701
  Transmission Date: 20050211
  Serious: Yes (Death, Hospitalization)
  Sender: FDA-Public Use
  Company Number: 2004AP03302

PATIENT
  Age: 85 Year
  Sex: Male
  Weight: 57.3 kg

DRUGS (10)
  1. OMEPRAL [Suspect]
     Indication: GASTRIC ULCER HAEMORRHAGE
     Dosage: 40 MG DAILY IV
     Route: 042
     Dates: start: 20040302, end: 20040309
  2. RADIATION THERAPY [Concomitant]
  3. CLARITH [Concomitant]
  4. LOXONIN [Concomitant]
  5. SELBEX [Concomitant]
  6. CARBENIN [Concomitant]
  7. ZYLORIC [Concomitant]
  8. DILTIAZEM HYDROCHLORIDE [Concomitant]
  9. ISOSORBIDE MONONITRATE [Concomitant]
  10. NORVASC [Concomitant]

REACTIONS (10)
  - AGRANULOCYTOSIS [None]
  - BONE MARROW DEPRESSION [None]
  - C-REACTIVE PROTEIN INCREASED [None]
  - DISSEMINATED INTRAVASCULAR COAGULATION [None]
  - METASTASES TO BONE MARROW [None]
  - PLATELET COUNT DECREASED [None]
  - PNEUMONIA [None]
  - RADIATION INJURY [None]
  - RESPIRATORY DEPRESSION [None]
  - SEPSIS [None]
